FAERS Safety Report 8982490 (Version 1)
Quarter: 2012Q4

REPORT INFORMATION
  Report Type: 
  Country: US (occurrence: US)
  Receive Date: 20121212
  Receipt Date: 20121212
  Transmission Date: 20130627
  Serious: Yes (Hospitalization, Other)
  Sender: FDA-Public Use
  Company Number: US-ASTELLAS-1112843

PATIENT
  Sex: Female

DRUGS (1)
  1. TARCEVA [Suspect]
     Indication: PANCREATIC CARCINOMA
     Route: 065

REACTIONS (4)
  - Renal cancer [Unknown]
  - Nephrolithiasis [Unknown]
  - Diarrhoea [Unknown]
  - Rash [Unknown]
